FAERS Safety Report 15272298 (Version 1)
Quarter: 2018Q3

REPORT INFORMATION
  Report Type: Spontaneous
  Country: GB (occurrence: GB)
  Receive Date: 20180813
  Receipt Date: 20180813
  Transmission Date: 20181010
  Serious: Yes (Other)
  Sender: FDA-Public Use
  Company Number: GB-TEVA-2018-GB-940265

PATIENT
  Age: 14 Year
  Sex: Female

DRUGS (2)
  1. FENTANYL. [Suspect]
     Active Substance: FENTANYL
     Route: 065
  2. XANAX [Suspect]
     Active Substance: ALPRAZOLAM
     Dosage: UNK
     Route: 065

REACTIONS (8)
  - Drug abuse [Unknown]
  - Feeling drunk [Unknown]
  - Gait disturbance [Unknown]
  - Abnormal behaviour [Unknown]
  - Dysarthria [Unknown]
  - Amnesia [Unknown]
  - Dependence [Unknown]
  - Aggression [Unknown]
